FAERS Safety Report 9780782 (Version 5)
Quarter: 2014Q2

REPORT INFORMATION
  Report Type: Report from Study
  Country: DE (occurrence: DE)
  Receive Date: 20131224
  Receipt Date: 20140620
  Transmission Date: 20141212
  Serious: Yes (Death, Life-Threatening, Hospitalization)
  Sender: FDA-Public Use
  Company Number: DE-ROCHE-1325073

PATIENT
  Age: 87 Year
  Sex: Female
  Weight: 80 kg

DRUGS (5)
  1. RANIBIZUMAB [Suspect]
     Indication: AGE-RELATED MACULAR DEGENERATION
     Route: 050
     Dates: start: 20131018
  2. RANIBIZUMAB [Suspect]
     Route: 050
     Dates: start: 20131218
  3. ASS100 [Concomitant]
  4. DOXEPIN [Concomitant]
     Route: 065
  5. RAMIPRIL [Concomitant]
     Route: 065

REACTIONS (2)
  - Death [Fatal]
  - Cerebrovascular accident [Recovering/Resolving]
